FAERS Safety Report 6096896-0 (Version None)
Quarter: 2009Q1

REPORT INFORMATION
  Report Type: 
  Country: None (occurrence: None)
  Receive Date: 20090225
  Receipt Date: 20090210
  Transmission Date: 20090719
  Serious: Yes (Death)
  Sender: FDA-Public Use
  Company Number: 1-17282144

PATIENT
  Age: 6 Month
  Sex: Male
  Weight: 3 kg

DRUGS (5)
  1. AMMONUL [Suspect]
     Indication: ARGININOSUCCINATE SYNTHETASE DEFICIENCY
     Dosage: 1ST DAY 16 ML THEN 8 ML
     Dates: start: 20081112, end: 20081212
  2. ARGININE-HCL 2% [Concomitant]
  3. UCD SOLUTION [Concomitant]
  4. BICARBONATE [Concomitant]
  5. INSULIN + GLUCOSE [Concomitant]

REACTIONS (8)
  - CARDIO-RESPIRATORY ARREST [None]
  - CARDIOVASCULAR INSUFFICIENCY [None]
  - INTESTINAL PERFORATION [None]
  - LABORATORY TEST ABNORMAL [None]
  - NECROTISING COLITIS [None]
  - OXYGEN SATURATION DECREASED [None]
  - POST PROCEDURAL COMPLICATION [None]
  - SEPSIS [None]
